FAERS Safety Report 8538055-5 (Version None)
Quarter: 2012Q3

REPORT INFORMATION
  Report Type: 
  Country: None (occurrence: None)
  Receive Date: 20120725
  Receipt Date: 20120720
  Transmission Date: 20120928
  Serious: Yes (Life-Threatening, Hospitalization, Other)
  Sender: FDA-Public Use
  Company Number: DE-PFIZER INC-DE-WYE-H18213910

PATIENT
  Age: 58 Year
  Sex: Male
  Weight: 77 kg

DRUGS (3)
  1. KEPPRA [Concomitant]
     Indication: CONVULSION
     Dosage: 750 MG, 1X/DAY
     Route: 048
     Dates: start: 20100620
  2. TEMSIROLIMUS [Suspect]
     Indication: GLIOBLASTOMA
     Dosage: 25 MG, 1X/WEEK
     Route: 042
     Dates: start: 20100714, end: 20101007
  3. ASPIRIN [Concomitant]
     Indication: ARRHYTHMIA PROPHYLAXIS
     Dosage: 100 MG, 1X/DAY
     Route: 048
     Dates: start: 20100705

REACTIONS (1)
  - PNEUMONIA PRIMARY ATYPICAL [None]
